FAERS Safety Report 6532176-4 (Version None)
Quarter: 2010Q1

REPORT INFORMATION
  Report Type: 
  Country: None (occurrence: None)
  Receive Date: 20100108
  Receipt Date: 20100104
  Transmission Date: 20100710
  Serious: Yes (Other)
  Sender: FDA-Public Use
  Company Number: FI-PFIZER INC-2009306576

PATIENT
  Age: 53 Year
  Sex: Female

DRUGS (2)
  1. CHAMPIX [Suspect]
     Indication: SMOKING CESSATION THERAPY
     Dosage: UNK
     Route: 048
     Dates: start: 20090801, end: 20090101
  2. NICORETTE [Concomitant]

REACTIONS (4)
  - FATIGUE [None]
  - HYPERHIDROSIS [None]
  - STOMATITIS [None]
  - TONGUE GEOGRAPHIC [None]
